FAERS Safety Report 24142355 (Version 1)
Quarter: 2024Q3

REPORT INFORMATION
  Report Type: Report from Study
  Country: US (occurrence: None)
  Receive Date: 20240726
  Receipt Date: 20240726
  Transmission Date: 20241017
  Serious: Yes (Other)
  Sender: ASTRAZENECA
  Company Number: 2024A165435

PATIENT
  Sex: Female

DRUGS (1)
  1. TAGRISSO [Suspect]
     Active Substance: OSIMERTINIB
     Indication: Lung neoplasm malignant
     Route: 048
     Dates: start: 20221021

REACTIONS (8)
  - Spinal column injury [Unknown]
  - Intervertebral disc space narrowing [Unknown]
  - Hypothyroidism [Unknown]
  - Abdominal discomfort [Unknown]
  - Pruritus [Unknown]
  - Skin burning sensation [Unknown]
  - Nervous system disorder [Unknown]
  - Hypersensitivity [Unknown]
